FAERS Safety Report 8154396-8 (Version None)
Quarter: 2012Q1

REPORT INFORMATION
  Report Type: 
  Country: None (occurrence: None)
  Receive Date: 20120217
  Receipt Date: 20120217
  Transmission Date: 20120608
  Serious: Yes (Life-Threatening, Hospitalization)
  Sender: FDA-Public Use
  Company Number: None

PATIENT
  Age: 62 Year
  Sex: Male

DRUGS (2)
  1. SIMVASTATIN [Suspect]
     Indication: HYPERLIPIDAEMIA
     Dosage: 80 MG EVERY DAY PO
     Route: 048
     Dates: start: 20111012, end: 20111231
  2. NIACIN [Suspect]
     Indication: HYPERLIPIDAEMIA
     Dosage: 2000 MG EVERY DAY PO
     Route: 048
     Dates: start: 20111024, end: 20111231

REACTIONS (1)
  - RHABDOMYOLYSIS [None]
